FAERS Safety Report 12111253 (Version 1)
Quarter: 2016Q1

REPORT INFORMATION
  Report Type: Spontaneous
  Country: US (occurrence: US)
  Receive Date: 20160224
  Receipt Date: 20160224
  Transmission Date: 20160526
  Serious: No
  Sender: FDA-Public Use
  Company Number: US-JAZZ-2015-US-009978

PATIENT
  Sex: Female

DRUGS (5)
  1. NEURONTIN [Concomitant]
     Active Substance: GABAPENTIN
  2. CYMBALTA [Concomitant]
     Active Substance: DULOXETINE HYDROCHLORIDE
  3. PRIALT [Suspect]
     Active Substance: ZICONOTIDE ACETATE
     Indication: PAIN
  4. PRIALT [Suspect]
     Active Substance: ZICONOTIDE ACETATE
     Indication: POST LAMINECTOMY SYNDROME
     Dosage: 0.05 ?G, QH
     Route: 037
     Dates: start: 20130612, end: 20140930
  5. DUEXIS [Concomitant]
     Active Substance: FAMOTIDINE\IBUPROFEN

REACTIONS (4)
  - Confusional state [Unknown]
  - Anxiety [Unknown]
  - Mood altered [Unknown]
  - Aggression [Unknown]

NARRATIVE: CASE EVENT DATE: 2013
